FAERS Safety Report 12484390 (Version 2)
Quarter: 2016Q3

REPORT INFORMATION
  Report Type: Spontaneous
  Country: US (occurrence: US)
  Receive Date: 20160621
  Receipt Date: 20160727
  Transmission Date: 20161109
  Serious: No
  Sender: FDA-Public Use
  Company Number: US-VERTEX PHARMACEUTICALS-2016-003885

PATIENT
  Age: 23 Year
  Sex: Female

DRUGS (8)
  1. PANCREAZE [Concomitant]
     Active Substance: PANCRELIPASE AMYLASE\PANCRELIPASE LIPASE\PANCRELIPASE PROTEASE
  2. ADVAIR HFA [Concomitant]
     Active Substance: FLUTICASONE PROPIONATE\SALMETEROL XINAFOATE
     Dosage: 250MG/150MG
  3. CETIRIZINE [Concomitant]
     Active Substance: CETIRIZINE HYDROCHLORIDE
  4. TOBRAMYCIN. [Concomitant]
     Active Substance: TOBRAMYCIN
  5. VITAMIN D3 [Concomitant]
     Active Substance: CHOLECALCIFEROL
  6. PULMOZYME [Concomitant]
     Active Substance: DORNASE ALFA
  7. MULTIVITAMINS [Concomitant]
     Active Substance: VITAMINS
  8. ORKAMBI [Suspect]
     Active Substance: IVACAFTOR\LUMACAFTOR
     Indication: CYSTIC FIBROSIS
     Dosage: 200-125MG, BID
     Route: 048
     Dates: start: 20150803, end: 201606

REACTIONS (1)
  - Drug ineffective [Unknown]

NARRATIVE: CASE EVENT DATE: 201606
